FAERS Safety Report 6519250-3 (Version None)
Quarter: 2009Q4

REPORT INFORMATION
  Report Type: 
  Country: None (occurrence: None)
  Receive Date: 20091228
  Receipt Date: 20091217
  Transmission Date: 20100525
  Serious: Yes (Other)
  Sender: FDA-Public Use
  Company Number: PHHY2009BR56862

PATIENT
  Age: 75 Year
  Sex: Female

DRUGS (2)
  1. MIACALCIN [Suspect]
     Dosage: ONCE IN EACH NOSTRIL EVERY 2 DAYS
     Route: 045
  2. RASILEZ [Concomitant]
     Dosage: UNK

REACTIONS (6)
  - ABDOMINAL PAIN [None]
  - ASTHENIA [None]
  - EATING DISORDER [None]
  - MALAISE [None]
  - NASAL CONGESTION [None]
  - NAUSEA [None]
